FAERS Safety Report 8609795-4 (Version None)
Quarter: 2012Q3

REPORT INFORMATION
  Report Type: 
  Country: None (occurrence: None)
  Receive Date: 20120821
  Receipt Date: 20120814
  Transmission Date: 20120928
  Serious: Yes (Death)
  Sender: FDA-Public Use
  Company Number: CHPA2012US017947

PATIENT
  Sex: Male

DRUGS (1)
  1. KERI ORIGINAL [Suspect]
     Indication: DRY SKIN
     Dosage: UNK, UNK
     Route: 061

REACTIONS (1)
  - DEATH [None]
